FAERS Safety Report 12273527 (Version 2)
Quarter: 2016Q2

REPORT INFORMATION
  Report Type: Spontaneous
  Country: US (occurrence: US)
  Receive Date: 20160415
  Receipt Date: 20160504
  Transmission Date: 20160815
  Serious: Yes (Death)
  Sender: FDA-Public Use
  Company Number: US-GE HEALTHCARE MEDICAL DIAGNOSTICS-DATS-PR-1604S-0027

PATIENT
  Age: 75 Year
  Sex: Male

DRUGS (31)
  1. POTASSIUM IODIDE. [Concomitant]
     Active Substance: POTASSIUM IODIDE
     Dates: start: 20160408, end: 20160408
  2. ATROVENT [Concomitant]
     Active Substance: IPRATROPIUM BROMIDE
  3. DILTIAZEM [Concomitant]
     Active Substance: DILTIAZEM
  4. HYDRODIURIL [Concomitant]
     Active Substance: HYDROCHLOROTHIAZIDE
  5. CALAN-SR [Concomitant]
  6. ANDROGEL [Concomitant]
     Active Substance: TESTOSTERONE
  7. POTASSIUM CHLORIDE. [Concomitant]
     Active Substance: POTASSIUM CHLORIDE
  8. MAXZIDE [Concomitant]
     Active Substance: HYDROCHLOROTHIAZIDE\TRIAMTERENE
  9. DATSCAN [Suspect]
     Active Substance: IODINE\IOFLUPANE I-123
     Indication: TREMOR
     Route: 042
     Dates: start: 20160408, end: 20160408
  10. ABILIFY [Concomitant]
     Active Substance: ARIPIPRAZOLE
  11. MAGNESIUM [Concomitant]
     Active Substance: MAGNESIUM
  12. PROTONIX [Concomitant]
     Active Substance: PANTOPRAZOLE SODIUM
  13. PROAIR HFA [Concomitant]
     Active Substance: ALBUTEROL SULFATE
  14. DATSCAN [Suspect]
     Active Substance: IODINE\IOFLUPANE I-123
     Indication: PARKINSON^S DISEASE
  15. SYNTHROID [Concomitant]
     Active Substance: LEVOTHYROXINE SODIUM
  16. BACTRIM [Concomitant]
     Active Substance: SULFAMETHOXAZOLE\TRIMETHOPRIM
  17. TOPIRAMATE. [Concomitant]
     Active Substance: TOPIRAMATE
  18. VITAMIN D2 [Concomitant]
     Active Substance: ERGOCALCIFEROL
  19. ZETIA [Concomitant]
     Active Substance: EZETIMIBE
  20. CRESTOR [Concomitant]
     Active Substance: ROSUVASTATIN CALCIUM
  21. VALIUM [Concomitant]
     Active Substance: DIAZEPAM
  22. SEROQUEL [Concomitant]
     Active Substance: QUETIAPINE FUMARATE
  23. LASIX [Concomitant]
     Active Substance: FUROSEMIDE
  24. PYRIDOXINE [Concomitant]
     Active Substance: PYRIDOXINE
  25. EFFEXOR XR [Concomitant]
     Active Substance: VENLAFAXINE HYDROCHLORIDE
  26. DATSCAN [Suspect]
     Active Substance: IODINE\IOFLUPANE I-123
     Indication: DIAGNOSTIC PROCEDURE
  27. CARDIZEM CD [Concomitant]
     Active Substance: DILTIAZEM HYDROCHLORIDE
  28. NEURONTIN [Concomitant]
     Active Substance: GABAPENTIN
  29. HYZAAR [Concomitant]
     Active Substance: HYDROCHLOROTHIAZIDE\LOSARTAN POTASSIUM
  30. MEFENAMIC [Concomitant]
     Active Substance: MEFENAMIC ACID
  31. NITROSTAT [Concomitant]
     Active Substance: NITROGLYCERIN

REACTIONS (1)
  - Choking [Fatal]

NARRATIVE: CASE EVENT DATE: 20160408
